FAERS Safety Report 16489486 (Version 1)
Quarter: 2019Q3

REPORT INFORMATION
  Report Type: Spontaneous
  Country: US (occurrence: US)
  Receive Date: 20190627
  Receipt Date: 20190627
  Transmission Date: 20191004
  Serious: Yes (Hospitalization)
  Sender: FDA-Public Use
  Company Number: None

PATIENT
  Age: 29 Year
  Sex: Female

DRUGS (9)
  1. ALPRAZOLAM TAB 0.5 MG [Concomitant]
  2. GAVILYTE-G SOL [Concomitant]
  3. DOXYXYXL HYC CAP 50 MG [Concomitant]
  4. SOOLANTRA CRE 1% [Concomitant]
  5. HUMIRA [Suspect]
     Active Substance: ADALIMUMAB
     Indication: CROHN^S DISEASE
     Dosage: ?          OTHER FREQUENCY:EVERY 14 DAYS;?
     Route: 058
     Dates: start: 20181126
  6. MERCAPTOPUR TAB 50 MG [Concomitant]
  7. CLINDAMYCIN LOT 1% [Concomitant]
  8. LORAZEPAM TAB 0.5 MG [Concomitant]
  9. SERTRALINE TAB 50 MG [Concomitant]

REACTIONS (2)
  - Abdominal pain [None]
  - Weight decreased [None]

NARRATIVE: CASE EVENT DATE: 20190601
